FAERS Safety Report 6545618-5 (Version None)
Quarter: 2010Q1

REPORT INFORMATION
  Report Type: 
  Country: None (occurrence: None)
  Receive Date: 20100121
  Receipt Date: 20100111
  Transmission Date: 20100710
  Serious: Yes (Life-Threatening, Other)
  Sender: FDA-Public Use
  Company Number: US-BAXTER-2008BH010977

PATIENT
  Age: 69 Year
  Sex: Female
  Weight: 63 kg

DRUGS (58)
  1. HEPARIN SODIUM INJECTION [Suspect]
     Indication: AORTIC VALVE REPLACEMENT
     Route: 042
     Dates: start: 20070220, end: 20070220
  2. HEPARIN SODIUM INJECTION [Suspect]
     Indication: PROPHYLAXIS
     Route: 042
     Dates: start: 20070220, end: 20070220
  3. HEPARIN SODIUM INJECTION [Suspect]
     Indication: INTRAVENOUS CATHETER MANAGEMENT
     Route: 042
     Dates: start: 20070220, end: 20070220
  4. HEPARIN SODIUM INJECTION [Suspect]
     Route: 042
     Dates: start: 20070220, end: 20070220
  5. HEPARIN SODIUM INJECTION [Suspect]
     Route: 042
     Dates: start: 20070220, end: 20070220
  6. HEPARIN SODIUM INJECTION [Suspect]
     Route: 042
     Dates: start: 20070220, end: 20070220
  7. HEPARIN SODIUM INJECTION [Suspect]
     Route: 042
     Dates: start: 20070221, end: 20070221
  8. HEPARIN SODIUM INJECTION [Suspect]
     Route: 042
     Dates: start: 20070221, end: 20070221
  9. HEPARIN SODIUM INJECTION [Suspect]
     Route: 042
     Dates: start: 20070221, end: 20070221
  10. HEPARIN SODIUM INJECTION [Suspect]
     Route: 042
     Dates: start: 20070220, end: 20070220
  11. HEPARIN SODIUM INJECTION [Suspect]
     Route: 042
     Dates: start: 20070220, end: 20070220
  12. HEPARIN SODIUM INJECTION [Suspect]
     Route: 042
     Dates: start: 20070220, end: 20070220
  13. HEPARIN SODIUM INJECTION [Suspect]
     Route: 042
     Dates: start: 20070222, end: 20070224
  14. HEPARIN SODIUM INJECTION [Suspect]
     Route: 042
     Dates: start: 20070222, end: 20070224
  15. HEPARIN SODIUM INJECTION [Suspect]
     Route: 042
     Dates: start: 20070222, end: 20070224
  16. HEPARIN SODIUM INJECTION [Suspect]
     Route: 042
     Dates: start: 20070220, end: 20070220
  17. HEPARIN SODIUM INJECTION [Suspect]
     Route: 042
     Dates: start: 20070220, end: 20070220
  18. HEPARIN SODIUM INJECTION [Suspect]
     Route: 042
     Dates: start: 20070220, end: 20070220
  19. HEPARIN SODIUM INJECTION [Suspect]
     Route: 042
     Dates: start: 20070306, end: 20070306
  20. HEPARIN SODIUM INJECTION [Suspect]
     Route: 042
     Dates: start: 20070306, end: 20070306
  21. HEPARIN SODIUM INJECTION [Suspect]
     Route: 042
     Dates: start: 20070306, end: 20070306
  22. HEPARIN SODIUM INJECTION [Suspect]
     Route: 042
     Dates: start: 20070308, end: 20070308
  23. HEPARIN SODIUM INJECTION [Suspect]
     Route: 042
     Dates: start: 20070308, end: 20070308
  24. HEPARIN SODIUM INJECTION [Suspect]
     Route: 042
     Dates: start: 20070308, end: 20070308
  25. HEPARIN SODIUM INJECTION [Suspect]
     Route: 042
     Dates: start: 20070309, end: 20070309
  26. HEPARIN SODIUM INJECTION [Suspect]
     Route: 042
     Dates: start: 20070309, end: 20070309
  27. HEPARIN SODIUM INJECTION [Suspect]
     Route: 042
     Dates: start: 20070309, end: 20070309
  28. HEPARIN SODIUM INJECTION [Suspect]
     Route: 042
     Dates: start: 20070312, end: 20070312
  29. HEPARIN SODIUM INJECTION [Suspect]
     Route: 042
     Dates: start: 20070312, end: 20070312
  30. HEPARIN SODIUM INJECTION [Suspect]
     Route: 042
     Dates: start: 20070312, end: 20070312
  31. HEPARIN SODIUM INJECTION [Suspect]
     Route: 042
     Dates: start: 20070314, end: 20070314
  32. HEPARIN SODIUM INJECTION [Suspect]
     Route: 042
     Dates: start: 20070314, end: 20070314
  33. HEPARIN SODIUM INJECTION [Suspect]
     Route: 042
     Dates: start: 20070314, end: 20070314
  34. HEPARIN SODIUM INJECTION [Suspect]
     Route: 042
     Dates: start: 20070316, end: 20070316
  35. HEPARIN SODIUM INJECTION [Suspect]
     Route: 042
     Dates: start: 20070316, end: 20070316
  36. HEPARIN SODIUM INJECTION [Suspect]
     Route: 042
     Dates: start: 20070316, end: 20070316
  37. HEPARIN SODIUM INJECTION [Suspect]
     Route: 042
     Dates: start: 20070319, end: 20070319
  38. HEPARIN SODIUM INJECTION [Suspect]
     Route: 042
     Dates: start: 20070319, end: 20070319
  39. HEPARIN SODIUM INJECTION [Suspect]
     Route: 042
     Dates: start: 20070319, end: 20070319
  40. HEPARIN SODIUM INJECTION [Suspect]
     Route: 058
     Dates: start: 20070309, end: 20070320
  41. HEPARIN SODIUM INJECTION [Suspect]
     Route: 058
     Dates: start: 20070309, end: 20070320
  42. HEPARIN SODIUM INJECTION [Suspect]
     Route: 058
     Dates: start: 20070309, end: 20070320
  43. HEPARIN SODIUM INJECTION [Suspect]
     Route: 042
     Dates: start: 20070220, end: 20070309
  44. HEPARIN SODIUM INJECTION [Suspect]
     Route: 042
     Dates: start: 20070220, end: 20070309
  45. HEPARIN SODIUM INJECTION [Suspect]
     Route: 042
     Dates: start: 20070220, end: 20070309
  46. HEPARIN SODIUM INJECTION [Suspect]
     Route: 041
     Dates: start: 20070220, end: 20070221
  47. HEPARIN SODIUM INJECTION [Suspect]
     Route: 041
     Dates: start: 20070220, end: 20070221
  48. HEPARIN SODIUM INJECTION [Suspect]
     Route: 041
     Dates: start: 20070220, end: 20070221
  49. STARLIX [Concomitant]
     Indication: DRUG USE FOR UNKNOWN INDICATION
     Route: 065
  50. LANTUS [Concomitant]
     Indication: DRUG USE FOR UNKNOWN INDICATION
     Route: 065
  51. AZITHROMYCIN [Concomitant]
     Indication: DRUG USE FOR UNKNOWN INDICATION
     Route: 065
  52. CHERATUSSIN COUGH SYRUP [Concomitant]
     Indication: DRUG USE FOR UNKNOWN INDICATION
     Route: 048
  53. VITAMIN B-12 [Concomitant]
     Indication: DRUG USE FOR UNKNOWN INDICATION
     Route: 065
  54. AVELOX [Concomitant]
     Indication: DRUG USE FOR UNKNOWN INDICATION
     Route: 065
  55. METOPROLOL [Concomitant]
     Indication: DRUG USE FOR UNKNOWN INDICATION
     Route: 065
  56. ALBUTEROL [Concomitant]
     Indication: DRUG USE FOR UNKNOWN INDICATION
     Route: 048
  57. BROMPHENIR./DEXTROMETHOR./GUAIFENESIN/TERPIN/ [Concomitant]
     Indication: DRUG USE FOR UNKNOWN INDICATION
     Route: 048
  58. LEVAQUIN [Concomitant]
     Indication: DRUG USE FOR UNKNOWN INDICATION
     Route: 065

REACTIONS (10)
  - CEREBROVASCULAR ACCIDENT [None]
  - ENCEPHALOPATHY [None]
  - HAEMODIALYSIS [None]
  - HAEMODYNAMIC INSTABILITY [None]
  - HAEMORRHAGE [None]
  - HYPOTENSION [None]
  - NEUROPATHY PERIPHERAL [None]
  - RENAL FAILURE [None]
  - SHOCK [None]
  - TACHYCARDIA [None]
